FAERS Safety Report 6990609-3 (Version None)
Quarter: 2010Q3

REPORT INFORMATION
  Report Type: 
  Country: None (occurrence: None)
  Receive Date: 20100916
  Receipt Date: 20100706
  Transmission Date: 20110219
  Serious: No
  Sender: FDA-Public Use
  Company Number: JP-PFIZER INC-2010078050

PATIENT
  Age: 72 Year
  Sex: Female

DRUGS (3)
  1. LYRICA [Suspect]
     Indication: POST HERPETIC NEURALGIA
     Dosage: UNK
     Route: 048
     Dates: start: 20100622, end: 20100622
  2. METHYCOBAL [Concomitant]
     Indication: POST HERPETIC NEURALGIA
     Dosage: 1500 UNK, UNK
     Route: 048
     Dates: start: 20100316
  3. NEUROVITAN [Concomitant]
     Indication: POST HERPETIC NEURALGIA
     Dosage: UNK
     Route: 048
     Dates: start: 20100316, end: 20100621

REACTIONS (4)
  - DECREASED APPETITE [None]
  - DIZZINESS [None]
  - HEARING IMPAIRED [None]
  - TREMOR [None]
